FAERS Safety Report 9282511 (Version 1)
Quarter: 2013Q2

REPORT INFORMATION
  Report Type: Spontaneous
  Country: US (occurrence: US)
  Receive Date: 20130510
  Receipt Date: 20130510
  Transmission Date: 20140414
  Serious: Yes (Other)
  Sender: FDA-Public Use
  Company Number: US-PFIZER INC-2013141221

PATIENT
  Age: 34 Year
  Sex: Male
  Weight: 116 kg

DRUGS (3)
  1. VIAGRA [Suspect]
     Dosage: UNK
     Dates: start: 2013
  2. XANAX [Concomitant]
     Dosage: UNK
  3. ROBITUSSIN [Concomitant]
     Dosage: UNK

REACTIONS (4)
  - Overdose [Unknown]
  - Erection increased [Not Recovered/Not Resolved]
  - Testicular disorder [Not Recovered/Not Resolved]
  - Penile size reduced [Not Recovered/Not Resolved]
